FAERS Safety Report 4698682-2 (Version None)
Quarter: 2005Q2

REPORT INFORMATION
  Report Type: 
  Country: None (occurrence: None)
  Receive Date: 20050622
  Receipt Date: 20050427
  Transmission Date: 20051028
  Serious: No
  Sender: FDA-Public Use
  Company Number: SU-2005-003492

PATIENT
  Age: 64 Year
  Sex: Male
  Weight: 111.1313 kg

DRUGS (3)
  1. BENICAR HCT [Suspect]
     Indication: HYPERTENSION
     Dosage: 40.125 MG QD PO
     Route: 048
     Dates: start: 20050425
  2. PRILOSEC [Concomitant]
  3. XANAX [Concomitant]

REACTIONS (1)
  - TINNITUS [None]
